FAERS Safety Report 6793458-4 (Version None)
Quarter: 2010Q2

REPORT INFORMATION
  Report Type: 
  Country: None (occurrence: None)
  Receive Date: 20100624
  Receipt Date: 20100503
  Transmission Date: 20101027
  Serious: Yes (Other)
  Sender: FDA-Public Use
  Company Number: US-MYLANLABS-2010S1004728

PATIENT
  Age: 73 Year
  Sex: Female
  Weight: 52.62 kg

DRUGS (10)
  1. CLOZAPINE [Suspect]
     Indication: PSYCHOTIC DISORDER
     Route: 048
     Dates: start: 20080811, end: 20100323
  2. CLOZAPINE [Suspect]
     Route: 048
     Dates: start: 20100325, end: 20100405
  3. CLOZAPINE [Suspect]
     Route: 048
     Dates: start: 20100416
  4. COMTAN [Concomitant]
  5. SEROQUEL [Concomitant]
  6. MIDODRINE HYDROCHLORIDE [Concomitant]
  7. CARBIDOPA-LEVODOPA [Concomitant]
     Dosage: 25MG/100MG
  8. CARBIDOPA-LEVODOPA [Concomitant]
     Dosage: EXTENDED RELEASE 25MG/100MG
  9. ALENDRONATE [Concomitant]
  10. PAXIL [Concomitant]

REACTIONS (2)
  - GRANULOCYTOPENIA [None]
  - LEUKOPENIA [None]
